FAERS Safety Report 8228982-0 (Version None)
Quarter: 2012Q1

REPORT INFORMATION
  Report Type: 
  Country: None (occurrence: None)
  Receive Date: 20120322
  Receipt Date: 20120320
  Transmission Date: 20120608
  Serious: Yes (Other)
  Sender: FDA-Public Use
  Company Number: CA-ROCHE-1051043

PATIENT
  Sex: Male

DRUGS (2)
  1. ACCUTANE [Suspect]
     Route: 048
  2. ACCUTANE [Suspect]
     Indication: ACNE
     Route: 048
     Dates: start: 20110601, end: 20111201

REACTIONS (1)
  - TREMOR [None]
